FAERS Safety Report 7111935-3 (Version None)
Quarter: 2010Q4

REPORT INFORMATION
  Report Type: 
  Country: None (occurrence: None)
  Receive Date: 20101119
  Receipt Date: 20101109
  Transmission Date: 20110411
  Serious: Yes (Other)
  Sender: FDA-Public Use
  Company Number: IT-PAR PHARMACEUTICAL, INC-2010SCPR002292

PATIENT
  Age: 5 Day
  Sex: Female
  Weight: 2.94 kg

DRUGS (1)
  1. PROPAFENONE HCL [Suspect]
     Indication: SUPRAVENTRICULAR TACHYCARDIA
     Dosage: 10 MG/KG/DAY
     Route: 048

REACTIONS (2)
  - RESPIRATORY DISTRESS [None]
  - SALIVARY HYPERSECRETION [None]
